FAERS Safety Report 20059032 (Version 1)
Quarter: 2021Q4

REPORT INFORMATION
  Report Type: Spontaneous
  Country: US (occurrence: US)
  Receive Date: 20211111
  Receipt Date: 20211111
  Transmission Date: 20220303
  Serious: No
  Sender: FDA-Public Use
  Company Number: US-JNJFOC-20211103647

PATIENT
  Sex: Female

DRUGS (2)
  1. JANSSEN COVID-19 VACCINE [Suspect]
     Active Substance: AD26.COV2.S
     Indication: Immunisation
     Route: 065
     Dates: start: 202104, end: 202104
  2. SYMTUZA [Suspect]
     Active Substance: COBICISTAT\DARUNAVIR\EMTRICITABINE\TENOFOVIR ALAFENAMIDE
     Indication: Product used for unknown indication
     Dosage: PATIENT HAS BEEN ON THIS PRODUCT FOR A VERY LONG TIME, APPROXIMATELY 30 YEARS.
     Route: 065

REACTIONS (3)
  - Therapeutic response unexpected [Unknown]
  - White blood cell count decreased [Unknown]
  - Thyroid disorder [Unknown]
